FAERS Safety Report 10244307 (Version 1)
Quarter: 2014Q2

REPORT INFORMATION
  Report Type: Spontaneous
  Country: DK (occurrence: DK)
  Receive Date: 20140618
  Receipt Date: 20140618
  Transmission Date: 20141212
  Serious: Yes (Disabling)
  Sender: FDA-Public Use
  Company Number: DK-ACTAVIS-2014-12646

PATIENT
  Sex: Female

DRUGS (3)
  1. EPIRUBICIN (UNKNOWN) [Suspect]
     Indication: CHEMOTHERAPY
     Dosage: DOSE AT 1ST CYCLE: 180 MG. DOSE AT 2ND CYCLE: 1700 MG. DOSE AT 3RD CYCLE: 100 MG
     Route: 065
     Dates: start: 20101215, end: 20110228
  2. SENDOXAN [Suspect]
     Indication: CHEMOTHERAPY
     Dosage: DOSE AT 1ST CYCLE: 1200 MG, 2ND CYCLE: 1100 MG AND 3RD CYCLE: 780 MG
     Route: 065
     Dates: start: 20101215, end: 20110228
  3. TAXOTERE [Suspect]
     Indication: CHEMOTHERAPY
     Dosage: 120 MG, UNKNOWN (GOT TREATMENT 5 TIMES)
     Route: 065
     Dates: start: 2011

REACTIONS (2)
  - Ageusia [Not Recovered/Not Resolved]
  - Anosmia [Not Recovered/Not Resolved]
